FAERS Safety Report 11705099 (Version 1)
Quarter: 2015Q4

REPORT INFORMATION
  Report Type: Spontaneous
  Country: US (occurrence: US)
  Receive Date: 20151106
  Receipt Date: 20151106
  Transmission Date: 20160304
  Serious: Yes (Other)
  Sender: FDA-Public Use
  Company Number: US-ASTRAZENECA-2013SE77134

PATIENT
  Age: 54 Year
  Sex: Female
  Weight: 88 kg

DRUGS (11)
  1. BYETTA [Suspect]
     Active Substance: EXENATIDE
     Route: 058
     Dates: start: 20110912
  2. LOSARTAN. [Concomitant]
     Active Substance: LOSARTAN
     Dates: start: 20110602
  3. CIPROFLOXACIN. [Concomitant]
     Active Substance: CIPROFLOXACIN
     Dates: start: 20110331
  4. GLIPIZIDE. [Concomitant]
     Active Substance: GLIPIZIDE
     Dates: start: 20130821
  5. ATENOLOL. [Concomitant]
     Active Substance: ATENOLOL
     Dates: start: 20120614
  6. BYETTA [Suspect]
     Active Substance: EXENATIDE
     Route: 065
     Dates: start: 200803, end: 201203
  7. SYNTHROID [Concomitant]
     Active Substance: LEVOTHYROXINE SODIUM
     Dates: start: 20120702
  8. BYETTA [Suspect]
     Active Substance: EXENATIDE
     Route: 058
     Dates: start: 20080310
  9. GLYBURIDE. [Concomitant]
     Active Substance: GLYBURIDE
     Dates: start: 20090812
  10. MELOXICAM. [Concomitant]
     Active Substance: MELOXICAM
     Dates: start: 20120622
  11. LISINOPRIL. [Concomitant]
     Active Substance: LISINOPRIL
     Dates: start: 20110331

REACTIONS (4)
  - Thyroid cancer metastatic [Unknown]
  - Metastases to lymph nodes [Unknown]
  - Autoimmune thyroiditis [Unknown]
  - Post procedural hypothyroidism [Unknown]

NARRATIVE: CASE EVENT DATE: 2011
